FAERS Safety Report 4963364-6 (Version None)
Quarter: 2006Q1

REPORT INFORMATION
  Report Type: 
  Country: None (occurrence: None)
  Receive Date: 20060329
  Receipt Date: 20060321
  Transmission Date: 20060701
  Serious: Yes (Other)
  Sender: FDA-Public Use
  Company Number: 2006040005

PATIENT
  Age: 71 Year
  Sex: Female
  Weight: 90.7194 kg

DRUGS (9)
  1. ZYRTEC [Suspect]
     Indication: HYPERSENSITIVITY
     Dosage: 10 MG (10 MG, 1 IN 1 D)
     Dates: start: 20030101
  2. ALL OTHER THERAPEUTIC PRODUCTS (ALL OTHER THERAPEUTIC PRODUCTS) [Suspect]
     Indication: ASTHMA
  3. PLAVIX [Concomitant]
  4. SINGULAIR ^MERCK^ (MONTELUKAST SODIUM) [Concomitant]
  5. DETROL LA (TOLTERODIN L-TARTRATE) [Concomitant]
  6. PROZAC [Concomitant]
  7. ACIPHEX [Concomitant]
  8. ALL OTHER THERAPEUTIC PRODUCTS [Concomitant]
  9. ANTIBIOTICS [Concomitant]

REACTIONS (7)
  - ASTHMA [None]
  - BRONCHITIS [None]
  - COELIAC DISEASE [None]
  - DYSPNOEA [None]
  - ECZEMA [None]
  - FUNGAL INFECTION [None]
  - SYSTEMIC LUPUS ERYTHEMATOSUS [None]
